FAERS Safety Report 12741732 (Version 1)
Quarter: 2016Q3

REPORT INFORMATION
  Report Type: Spontaneous
  Country: PE (occurrence: PE)
  Receive Date: 20160914
  Receipt Date: 20160914
  Transmission Date: 20161109
  Serious: Yes (Other)
  Sender: FDA-Public Use
  Company Number: PE-GLAXOSMITHKLINE-PE2016GSK133145

PATIENT
  Age: 74 Year
  Sex: Female

DRUGS (3)
  1. WELLBUTRIN XL [Suspect]
     Active Substance: BUPROPION HYDROCHLORIDE
     Indication: DEPRESSION
     Dosage: 300 MG, 1D
     Route: 048
     Dates: start: 20130404
  2. CYMBALTA [Suspect]
     Active Substance: DULOXETINE HYDROCHLORIDE
  3. RIVOTRIL [Suspect]
     Active Substance: CLONAZEPAM

REACTIONS (1)
  - Hip surgery [Recovering/Resolving]

NARRATIVE: CASE EVENT DATE: 20160510
